FAERS Safety Report 21670787 (Version 2)
Quarter: 2023Q1

REPORT INFORMATION
  Report Type: Report from Study
  Country: IT (occurrence: IT)
  Receive Date: 20221202
  Receipt Date: 20230208
  Transmission Date: 20230418
  Serious: Yes (Death, Disabling, Other)
  Sender: FDA-Public Use
  Company Number: IT-002147023-NVSC2022IT278665

PATIENT
  Age: 59 Year
  Sex: Male
  Weight: 67 kg

DRUGS (2)
  1. TAFINLAR [Suspect]
     Active Substance: DABRAFENIB MESYLATE
     Indication: Glioblastoma
     Dosage: 300 MG
     Route: 048
     Dates: start: 20220211, end: 20220222
  2. TRAMETINIB [Suspect]
     Active Substance: TRAMETINIB
     Indication: Glioblastoma
     Dosage: 2 MG
     Route: 048
     Dates: start: 20220211, end: 20220222

REACTIONS (3)
  - Death [Fatal]
  - Glioblastoma [Not Recovered/Not Resolved]
  - Malignant neoplasm progression [Not Recovered/Not Resolved]

NARRATIVE: CASE EVENT DATE: 20220222
